FAERS Safety Report 6661489-0 (Version None)
Quarter: 2010Q1

REPORT INFORMATION
  Report Type: 
  Country: None (occurrence: None)
  Receive Date: 20100331
  Receipt Date: 20100322
  Transmission Date: 20100710
  Serious: Yes (Other)
  Sender: FDA-Public Use
  Company Number: US-PFIZER INC-2010037295

PATIENT
  Sex: Male

DRUGS (2)
  1. CLEOCIN [Suspect]
     Indication: TOOTH INFECTION
     Dosage: UNK
     Dates: start: 20100319, end: 20100321
  2. VICODIN [Suspect]
     Indication: TOOTH INFECTION
     Dosage: UNK
     Dates: start: 20100301, end: 20100321

REACTIONS (2)
  - SWOLLEN TONGUE [None]
  - TONGUE DISORDER [None]
